FAERS Safety Report 25483137 (Version 1)
Quarter: 2025Q2

REPORT INFORMATION
  Report Type: Spontaneous
  Country: US (occurrence: US)
  Receive Date: 20250626
  Receipt Date: 20250626
  Transmission Date: 20250717
  Serious: No
  Sender: MYLAN
  Company Number: US-MYLANLABS-2024M1113455

PATIENT
  Age: 87 Year
  Sex: Female

DRUGS (32)
  1. BREYNA [Suspect]
     Active Substance: BUDESONIDE\FORMOTEROL FUMARATE
     Indication: Asthma
     Dosage: 160/9 MICROGRAM, BID (2 PUFFS EVERY 12 HOURS, 2 IN THE MORNING, 2 IN THE EVENING)
     Route: 055
  2. BREYNA [Suspect]
     Active Substance: BUDESONIDE\FORMOTEROL FUMARATE
     Dosage: 160/9 MICROGRAM, BID (2 PUFFS EVERY 12 HOURS, 2 IN THE MORNING, 2 IN THE EVENING)
  3. BREYNA [Suspect]
     Active Substance: BUDESONIDE\FORMOTEROL FUMARATE
     Dosage: 160/9 MICROGRAM, BID (2 PUFFS EVERY 12 HOURS, 2 IN THE MORNING, 2 IN THE EVENING)
  4. BREYNA [Suspect]
     Active Substance: BUDESONIDE\FORMOTEROL FUMARATE
     Dosage: 160/9 MICROGRAM, BID (2 PUFFS EVERY 12 HOURS, 2 IN THE MORNING, 2 IN THE EVENING)
     Route: 055
  5. BREYNA [Suspect]
     Active Substance: BUDESONIDE\FORMOTEROL FUMARATE
     Dosage: 160 MICROGRAM, BID (4 TIMES A DAY, 2 IN THE MORNING AND 2 AT NIGHT)
     Route: 055
  6. BREYNA [Suspect]
     Active Substance: BUDESONIDE\FORMOTEROL FUMARATE
     Dosage: 160 MICROGRAM, BID (4 TIMES A DAY, 2 IN THE MORNING AND 2 AT NIGHT)
  7. BREYNA [Suspect]
     Active Substance: BUDESONIDE\FORMOTEROL FUMARATE
     Dosage: 160 MICROGRAM, BID (4 TIMES A DAY, 2 IN THE MORNING AND 2 AT NIGHT)
  8. BREYNA [Suspect]
     Active Substance: BUDESONIDE\FORMOTEROL FUMARATE
     Dosage: 160 MICROGRAM, BID (4 TIMES A DAY, 2 IN THE MORNING AND 2 AT NIGHT)
     Route: 055
  9. ELIQUIS [Concomitant]
     Active Substance: APIXABAN
  10. ELIQUIS [Concomitant]
     Active Substance: APIXABAN
     Route: 065
  11. ELIQUIS [Concomitant]
     Active Substance: APIXABAN
     Route: 065
  12. ELIQUIS [Concomitant]
     Active Substance: APIXABAN
  13. AMLODIPINE [Concomitant]
     Active Substance: AMLODIPINE BESYLATE
  14. AMLODIPINE [Concomitant]
     Active Substance: AMLODIPINE BESYLATE
     Route: 065
  15. AMLODIPINE [Concomitant]
     Active Substance: AMLODIPINE BESYLATE
     Route: 065
  16. AMLODIPINE [Concomitant]
     Active Substance: AMLODIPINE BESYLATE
  17. METOPROLOL [Concomitant]
     Active Substance: METOPROLOL
  18. METOPROLOL [Concomitant]
     Active Substance: METOPROLOL
     Route: 065
  19. METOPROLOL [Concomitant]
     Active Substance: METOPROLOL
     Route: 065
  20. METOPROLOL [Concomitant]
     Active Substance: METOPROLOL
  21. RABEPRAZOLE [Concomitant]
     Active Substance: RABEPRAZOLE
  22. RABEPRAZOLE [Concomitant]
     Active Substance: RABEPRAZOLE
     Route: 065
  23. RABEPRAZOLE [Concomitant]
     Active Substance: RABEPRAZOLE
     Route: 065
  24. RABEPRAZOLE [Concomitant]
     Active Substance: RABEPRAZOLE
  25. ALBUTEROL [Concomitant]
     Active Substance: ALBUTEROL
  26. ALBUTEROL [Concomitant]
     Active Substance: ALBUTEROL
     Route: 065
  27. ALBUTEROL [Concomitant]
     Active Substance: ALBUTEROL
     Route: 065
  28. ALBUTEROL [Concomitant]
     Active Substance: ALBUTEROL
  29. ALBUTEROL [Concomitant]
     Active Substance: ALBUTEROL
  30. ALBUTEROL [Concomitant]
     Active Substance: ALBUTEROL
     Route: 065
  31. ALBUTEROL [Concomitant]
     Active Substance: ALBUTEROL
     Route: 065
  32. ALBUTEROL [Concomitant]
     Active Substance: ALBUTEROL

REACTIONS (3)
  - Product taste abnormal [Unknown]
  - Device delivery system issue [Unknown]
  - Device issue [Unknown]

NARRATIVE: CASE EVENT DATE: 20241101
